FAERS Safety Report 4474736-0 (Version None)
Quarter: 2004Q4

REPORT INFORMATION
  Report Type: 
  Country: None (occurrence: None)
  Receive Date: 20041012
  Receipt Date: 20040928
  Transmission Date: 20050328
  Serious: Yes (Hospitalization, Other)
  Sender: FDA-Public Use
  Company Number: 2004232820CA

PATIENT
  Age: 49 Year
  Sex: Female

DRUGS (7)
  1. CELEBREX [Suspect]
     Indication: BACK PAIN
     Dosage: 20 MG, QD, ORAL
     Route: 048
     Dates: start: 20040108, end: 20040115
  2. ALTACE [Suspect]
  3. LIPITOR [Concomitant]
  4. PAXIL [Concomitant]
  5. NOVASEN [Concomitant]
  6. MONOCOR [Concomitant]
  7. COMBIVENT [Concomitant]

REACTIONS (2)
  - DYSPNOEA EXACERBATED [None]
  - PULMONARY OEDEMA [None]
